FAERS Safety Report 12687790 (Version 1)
Quarter: 2016Q3

REPORT INFORMATION
  Report Type: Spontaneous
  Country: IT (occurrence: IT)
  Receive Date: 20160826
  Receipt Date: 20160826
  Transmission Date: 20161109
  Serious: Yes (Life-Threatening, Hospitalization)
  Sender: FDA-Public Use
  Company Number: IT-ACCORD-043368

PATIENT
  Age: 51 Year
  Sex: Male

DRUGS (7)
  1. CICLOSPORIN [Suspect]
     Active Substance: CYCLOSPORINE
     Indication: PROPHYLAXIS AGAINST GRAFT VERSUS HOST DISEASE
     Dosage: DOSE: 1.5 MG/KG TWICE DAILY FROM DAY -1
  2. METHOTREXATE. [Suspect]
     Active Substance: METHOTREXATE
     Indication: PROPHYLAXIS AGAINST GRAFT VERSUS HOST DISEASE
     Dosage: DOSE: 15 MG/M2, 24 H AFTER TRANSPLANT, THEN 10 MG/M2 ON DAYS 03, 06, AND 11.
  3. BUSULFAN. [Suspect]
     Active Substance: BUSULFAN
     Indication: STEM CELL TRANSPLANT
     Dosage: DOSE: 3.2 MG/KG/DAY ON DAYS -7 TO -4??RECEIVED AS CONDITIONING REGIMEN
  4. BUDESONIDE. [Suspect]
     Active Substance: BUDESONIDE
     Indication: ACUTE GRAFT VERSUS HOST DISEASE
     Dosage: RECEIVED ON DAY 28
     Route: 048
  5. CYCLOPHOSPHAMIDE/CYCLOPHOSPHAMIDE MONOHYDRATE [Suspect]
     Active Substance: CYCLOPHOSPHAMIDE
     Indication: STEM CELL TRANSPLANT
     Dosage: DOSE: 60 MG/KG/DAY ON DAYS -3 AND -2??RECEIVED AS CONDITIONING REGIMEN.
  6. ANTITHYMOCYTE IMMUNOGLOBULIN [Suspect]
     Active Substance: THYMOCYTE IMMUNE GLOBULIN NOS
     Indication: PROPHYLAXIS AGAINST GRAFT VERSUS HOST DISEASE
     Dosage: DOSE: 2.5 MG/KG ON DAYS 03 AND 02
  7. MYCOPHENOLIC ACID. [Suspect]
     Active Substance: MYCOPHENOLIC ACID
     Indication: ACUTE GRAFT VERSUS HOST DISEASE
     Dosage: RECEIVED ON DAY 29
     Route: 042

REACTIONS (3)
  - Acute graft versus host disease [Recovered/Resolved]
  - Off label use [Unknown]
  - Drug ineffective [Unknown]
